FAERS Safety Report 8576787-3 (Version None)
Quarter: 2012Q3

REPORT INFORMATION
  Report Type: 
  Country: None (occurrence: None)
  Receive Date: 20120807
  Receipt Date: 20120724
  Transmission Date: 20120928
  Serious: Yes (Hospitalization)
  Sender: FDA-Public Use
  Company Number: AU-ALEXION PHARMACEUTICALS INC.-A201201290

PATIENT
  Sex: Female
  Weight: 60 kg

DRUGS (16)
  1. BUDESONIDE [Concomitant]
     Indication: ROUTINE HEALTH MAINTENANCE
     Dosage: 3 MG, TID (TDS)
     Route: 048
  2. BIOMAG [Concomitant]
     Indication: ROUTINE HEALTH MAINTENANCE
     Dosage: 2 TABLETS TID
     Route: 048
  3. ACYCLOVIR [Concomitant]
     Indication: ROUTINE HEALTH MAINTENANCE
     Dosage: 200 MG, TID (TDS)
     Route: 048
  4. PANTOPRAZOLE [Concomitant]
     Indication: ROUTINE HEALTH MAINTENANCE
     Dosage: 40 MG, QD
     Route: 048
  5. SLOW-K [Concomitant]
     Indication: ROUTINE HEALTH MAINTENANCE
     Dosage: 2 TABLSTS TID
     Route: 048
  6. OSTELIN [Concomitant]
     Indication: ROUTINE HEALTH MAINTENANCE
     Dosage: 2 TABLETS DAILY
     Route: 048
  7. PREDNISOLONE [Concomitant]
     Indication: ROUTINE HEALTH MAINTENANCE
     Dosage: 10 MG, QD
     Route: 048
  8. BACTRIM [Concomitant]
     Indication: ROUTINE HEALTH MAINTENANCE
     Dosage: 1 BD (MONDAY/THURSDAY)
     Route: 048
  9. PENICILLIN [Concomitant]
     Indication: ROUTINE HEALTH MAINTENANCE
     Dosage: 1 TABLET DAILY
     Route: 048
  10. PROPANAZOLE [Concomitant]
     Indication: ROUTINE HEALTH MAINTENANCE
     Dosage: 20 MG, QD
     Route: 048
  11. INTRAGAM [Concomitant]
     Indication: ROUTINE HEALTH MAINTENANCE
     Dosage: UNK MONTHLY
     Route: 042
  12. PIPERACILLIN AND TAZOBACTAM [Concomitant]
     Indication: SEPSIS
     Dosage: 4.5 G, TID
     Dates: start: 20120403, end: 20120407
  13. ECULIZUMAB [Suspect]
     Indication: PAROXYSMAL NOCTURNAL HAEMOGLOBINURIA
     Dosage: 900 MG, Q2W
     Route: 042
     Dates: start: 20080909, end: 20090605
  14. OVESTIN [Concomitant]
     Indication: ROUTINE HEALTH MAINTENANCE
     Dosage: UNK CREAM
     Route: 067
  15. TEVATE [Concomitant]
     Indication: ROUTINE HEALTH MAINTENANCE
     Dosage: 1 TABLET DAILY
     Route: 048
  16. CALCIUM [Concomitant]
     Indication: ROUTINE HEALTH MAINTENANCE
     Dosage: 1 TABLET DAILY
     Route: 048

REACTIONS (1)
  - SEPSIS [None]
